FAERS Safety Report 21153435 (Version 2)
Quarter: 2022Q3

REPORT INFORMATION
  Report Type: Spontaneous
  Country: CN (occurrence: CN)
  Receive Date: 20220731
  Receipt Date: 20220803
  Transmission Date: 20221027
  Serious: Yes (Hospitalization)
  Sender: FDA-Public Use
  Company Number: CN-BoehringerIngelheim-2022-BI-184511

PATIENT
  Age: 78 Year
  Sex: Female

DRUGS (2)
  1. PRADAXA [Suspect]
     Active Substance: DABIGATRAN ETEXILATE MESYLATE
     Indication: Anticoagulant therapy
     Route: 048
     Dates: start: 20210613, end: 20220713
  2. Rivaroxaban tablets [Concomitant]
     Indication: Anticoagulant therapy
     Route: 048
     Dates: start: 20220623, end: 20220713

REACTIONS (3)
  - Gastrointestinal haemorrhage [Recovering/Resolving]
  - Dizziness [Recovering/Resolving]
  - Dyspnoea exertional [Recovering/Resolving]

NARRATIVE: CASE EVENT DATE: 20220627
